FAERS Safety Report 4396278-3 (Version None)
Quarter: 2004Q3

REPORT INFORMATION
  Report Type: 
  Country: None (occurrence: None)
  Receive Date: 20040709
  Receipt Date: 20040624
  Transmission Date: 20050211
  Serious: Yes (Disabling)
  Sender: FDA-Public Use
  Company Number: 2004-DE-03529SI

PATIENT
  Age: 45 Year
  Sex: Female

DRUGS (2)
  1. SIFROL (PRAMIPEXOLE DIHYDROCHLORIDE) (TA) (PRAMIPEXOLE) [Suspect]
     Indication: RESTLESS LEGS SYNDROME
     Dosage: 0.75 MG PO
     Route: 048
  2. RIVOTRIL (CLONAZEPAM) [Concomitant]

REACTIONS (2)
  - ABORTION MISSED [None]
  - DRUG EXPOSURE DURING PREGNANCY [None]
